FAERS Safety Report 21642257 (Version 1)
Quarter: 2022Q4

REPORT INFORMATION
  Report Type: Spontaneous
  Country: US (occurrence: US)
  Receive Date: 20221125
  Receipt Date: 20221125
  Transmission Date: 20230113
  Serious: No
  Sender: FDA-Public Use
  Company Number: US-BTGSP-US-BTGSP-22-0086

PATIENT

DRUGS (1)
  1. CROFAB [Suspect]
     Active Substance: CROTALIDAE POLYVALENT IMMUNE FAB (OVINE)
     Indication: Product used for unknown indication
     Dosage: FIRST DOSE AT THIS HOSPITAL
     Route: 050

REACTIONS (1)
  - Medication error [Unknown]
